FAERS Safety Report 8058313 (Version 4)
Quarter: 2017Q1

REPORT INFORMATION
  Report Type: Spontaneous
  Country: JP (occurrence: JP)
  Receive Date: 20110728
  Receipt Date: 20170214
  Transmission Date: 20170429
  Serious: Yes (Death, Other)
  Sender: FDA-Public Use
  Company Number: JP-BRISTOL-MYERS SQUIBB COMPANY-15922917

PATIENT
  Age: 68 Year
  Sex: Male
  Weight: 52.5 kg

DRUGS (2)
  1. TAXOL [Suspect]
     Active Substance: PACLITAXEL
     Indication: LUNG NEOPLASM MALIGNANT
     Dosage: RECEIVED 3 TIMES
     Route: 041
     Dates: start: 20110706, end: 20110720
  2. CARBOPLATIN. [Suspect]
     Active Substance: CARBOPLATIN
     Indication: LUNG NEOPLASM MALIGNANT
     Dosage: 500MG X1/MONTH, ON 06-JUL-2011 (ONCE)  ROUTE IV,500MG WEEKLY
     Route: 041
     Dates: start: 20110706, end: 20110706

REACTIONS (4)
  - Malignant neoplasm progression [Fatal]
  - Ventricular extrasystoles [Fatal]
  - Ventricular fibrillation [Fatal]
  - Respiratory arrest [Unknown]

NARRATIVE: CASE EVENT DATE: 201107
